FAERS Safety Report 6885281-7 (Version None)
Quarter: 2010Q3

REPORT INFORMATION
  Report Type: 
  Country: None (occurrence: None)
  Receive Date: 20100729
  Receipt Date: 20100729
  Transmission Date: 20110219
  Serious: Yes (Disabling)
  Sender: FDA-Public Use
  Company Number: None

PATIENT
  Age: 30 Year
  Sex: Female

DRUGS (1)
  1. HEPARIN SODIUM [Suspect]
     Dosage: 2500 UNITS/1L NS ONCE INTRA-ARTERIAL
     Route: 013
     Dates: start: 20100728, end: 20100728

REACTIONS (3)
  - ERYTHEMA [None]
  - INFUSION RELATED REACTION [None]
  - SKIN WARM [None]
